FAERS Safety Report 17717298 (Version 3)
Quarter: 2021Q2

REPORT INFORMATION
  Report Type: Spontaneous
  Country: US (occurrence: US)
  Receive Date: 20200428
  Receipt Date: 20210521
  Transmission Date: 20210716
  Serious: Yes (Death, Other)
  Sender: FDA-Public Use
  Company Number: US-ASTRAZENECA-2020SE54107

PATIENT
  Age: 25423 Day
  Sex: Female
  Weight: 111.6 kg

DRUGS (41)
  1. GLIPIZIDE. [Concomitant]
     Active Substance: GLIPIZIDE
  2. TIZANIDINE. [Concomitant]
     Active Substance: TIZANIDINE
  3. OXYGEN. [Concomitant]
     Active Substance: OXYGEN
  4. LEXAPRO [Concomitant]
     Active Substance: ESCITALOPRAM OXALATE
  5. CEFTIN [Concomitant]
     Active Substance: CEFUROXIME AXETIL
  6. PROTONIX [Suspect]
     Active Substance: PANTOPRAZOLE SODIUM
     Indication: GASTROOESOPHAGEAL REFLUX DISEASE
     Dosage: GENERIC
     Route: 065
     Dates: start: 2015
  7. GABAPENTIN. [Concomitant]
     Active Substance: GABAPENTIN
  8. CIPROFLOXACIN. [Concomitant]
     Active Substance: CIPROFLOXACIN
     Indication: INFECTION
     Dates: start: 2013
  9. PROTONIX [Suspect]
     Active Substance: PANTOPRAZOLE SODIUM
     Indication: GASTROOESOPHAGEAL REFLUX DISEASE
     Dosage: GENERIC
     Route: 065
     Dates: start: 2015, end: 2018
  10. FUROSEMIDE. [Concomitant]
     Active Substance: FUROSEMIDE
  11. NOVOLOG [Concomitant]
     Active Substance: INSULIN ASPART
  12. ZITHROMAX [Concomitant]
     Active Substance: AZITHROMYCIN DIHYDRATE
  13. FLUCONAZOLE. [Concomitant]
     Active Substance: FLUCONAZOLE
  14. GLUCOSE [Concomitant]
     Active Substance: DEXTROSE
  15. SPIRIVA [Concomitant]
     Active Substance: TIOTROPIUM BROMIDE MONOHYDRATE
  16. IBUPROFEN. [Concomitant]
     Active Substance: IBUPROFEN
  17. HYDROXYCHLOROQUINE [Concomitant]
     Active Substance: HYDROXYCHLOROQUINE
  18. OMEPRAZOLE. [Suspect]
     Active Substance: OMEPRAZOLE
     Indication: GASTROOESOPHAGEAL REFLUX DISEASE
     Dosage: GENERIC
     Route: 065
     Dates: start: 2015
  19. LISINOPRIL. [Concomitant]
     Active Substance: LISINOPRIL
     Indication: CARDIAC FAILURE
     Dates: start: 2013
  20. FLOVENT DISKUS [Concomitant]
     Active Substance: FLUTICASONE PROPIONATE
  21. NEXIUM [Suspect]
     Active Substance: ESOMEPRAZOLE MAGNESIUM
     Indication: GASTROOESOPHAGEAL REFLUX DISEASE
     Route: 048
     Dates: start: 2003
  22. PREVACID [Suspect]
     Active Substance: LANSOPRAZOLE
     Indication: GASTROOESOPHAGEAL REFLUX DISEASE
     Route: 065
     Dates: start: 200101, end: 200601
  23. AMLODIPINE [Concomitant]
     Active Substance: AMLODIPINE BESYLATE
  24. HYDROCODONE/PARACETAMOL [Concomitant]
     Active Substance: ACETAMINOPHEN\HYDROCODONE BITARTRATE
  25. KLOR?CON [Concomitant]
     Active Substance: POTASSIUM CHLORIDE
  26. ALBUTEROL. [Concomitant]
     Active Substance: ALBUTEROL
  27. BYDUREON [Concomitant]
     Active Substance: EXENATIDE
  28. TRESIBA [Concomitant]
     Active Substance: INSULIN DEGLUDEC
  29. NEXIUM [Suspect]
     Active Substance: ESOMEPRAZOLE MAGNESIUM
     Indication: GASTROOESOPHAGEAL REFLUX DISEASE
     Route: 048
     Dates: start: 200101, end: 200601
  30. PROTONIX [Suspect]
     Active Substance: PANTOPRAZOLE SODIUM
     Indication: GASTROOESOPHAGEAL REFLUX DISEASE
     Route: 065
     Dates: start: 2015
  31. LEVEMIR [Concomitant]
     Active Substance: INSULIN DETEMIR
  32. SINGULAIR [Concomitant]
     Active Substance: MONTELUKAST SODIUM
  33. ANUSOL NOS [Concomitant]
     Active Substance: BALSAM PERU\BENZYL BENZOATE\BISMUTH HYDROXIDE\BISMUTH SUBGALLATE\HYDROCORTISONE ACETATE\ZINC OXIDE
  34. METRONIDAZOLE. [Concomitant]
     Active Substance: METRONIDAZOLE
  35. PREVACID [Suspect]
     Active Substance: LANSOPRAZOLE
     Indication: GASTROOESOPHAGEAL REFLUX DISEASE
     Route: 065
     Dates: start: 2001, end: 2018
  36. LISINOPRIL. [Concomitant]
     Active Substance: LISINOPRIL
     Indication: BLOOD PRESSURE ABNORMAL
     Dates: start: 2013
  37. ZOLPIDEM TARTRATE. [Concomitant]
     Active Substance: ZOLPIDEM TARTRATE
  38. ADVAIR DISKUS [Concomitant]
     Active Substance: FLUTICASONE PROPIONATE\SALMETEROL XINAFOATE
  39. LEVAQUIN [Concomitant]
     Active Substance: LEVOFLOXACIN
     Indication: INFECTION
     Dates: start: 2015
  40. XARELTO [Concomitant]
     Active Substance: RIVAROXABAN
  41. NORVASC [Concomitant]
     Active Substance: AMLODIPINE BESYLATE

REACTIONS (5)
  - Chronic obstructive pulmonary disease [Fatal]
  - Chronic kidney disease [Not Recovered/Not Resolved]
  - End stage renal disease [Fatal]
  - Renal failure [Unknown]
  - Cardio-respiratory arrest [Fatal]

NARRATIVE: CASE EVENT DATE: 20151007
